FAERS Safety Report 7831235-3 (Version None)
Quarter: 2011Q4

REPORT INFORMATION
  Report Type: 
  Country: None (occurrence: None)
  Receive Date: 20111021
  Receipt Date: 20111011
  Transmission Date: 20120403
  Serious: Yes (Hospitalization)
  Sender: FDA-Public Use
  Company Number: JP-ROCHE-1005383

PATIENT
  Age: 88 Year
  Sex: Male

DRUGS (4)
  1. LUCENTIS [Suspect]
     Indication: AGE-RELATED MACULAR DEGENERATION
     Route: 050
     Dates: start: 20110831
  2. AMLODIPINE [Concomitant]
     Route: 065
     Dates: start: 20110801, end: 20110831
  3. EPINASTINE HYDROCHLORIDE [Concomitant]
     Route: 065
     Dates: start: 20110801, end: 20110831
  4. CLARITHROMYCIN [Concomitant]
     Route: 065
     Dates: start: 20110801, end: 20110831

REACTIONS (1)
  - CEREBRAL INFARCTION [None]
